FAERS Safety Report 8200815-8 (Version None)
Quarter: 2012Q1

REPORT INFORMATION
  Report Type: 
  Country: None (occurrence: None)
  Receive Date: 20120307
  Receipt Date: 20120125
  Transmission Date: 20120608
  Serious: Yes (Other)
  Sender: FDA-Public Use
  Company Number: 2012AA000121

PATIENT
  Age: 59 Year
  Sex: Male

DRUGS (1)
  1. PHARMALGEN (801) APIS MELLIFERA (PHARMALGEN (801) APIS MELLIFERA) [Suspect]
     Indication: HYPERSENSITIVITY
     Dosage: 100 MICROGRAMS, MONTHLY
     Route: 058

REACTIONS (2)
  - ANAPHYLACTIC REACTION [None]
  - PRURITUS [None]
